FAERS Safety Report 4754218-9 (Version None)
Quarter: 2005Q3

REPORT INFORMATION
  Report Type: 
  Country: None (occurrence: None)
  Receive Date: 20050825
  Receipt Date: 20050817
  Transmission Date: 20060218
  Serious: Yes (Other)
  Sender: FDA-Public Use
  Company Number: 107330ISR

PATIENT
  Sex: Male

DRUGS (1)
  1. SOTALOL HCL [Suspect]
     Indication: ARRHYTHMIA
     Dosage: 320 MILLIGRAM ORAL
     Route: 048

REACTIONS (4)
  - MANIA [None]
  - PANIC ATTACK [None]
  - PERSONALITY CHANGE [None]
  - PSYCHOTIC DISORDER [None]
